FAERS Safety Report 19836447 (Version 1)
Quarter: 2021Q3

REPORT INFORMATION
  Report Type: Spontaneous
  Country: US (occurrence: US)
  Receive Date: 20210915
  Receipt Date: 20210915
  Transmission Date: 20211014
  Serious: No
  Sender: FDA-Public Use
  Company Number: US-BIOHAVEN PHARMACEUTICALS-2021BHV00973

PATIENT
  Age: 4 Decade
  Sex: Female
  Weight: 96.15 kg

DRUGS (6)
  1. LISINOPRIL. [Concomitant]
     Active Substance: LISINOPRIL
  2. SYNTHROID [Concomitant]
     Active Substance: LEVOTHYROXINE SODIUM
  3. INDERAL [Concomitant]
     Active Substance: PROPRANOLOL HYDROCHLORIDE
  4. METFORMIN HYDROCHLORIDE. [Concomitant]
     Active Substance: METFORMIN HYDROCHLORIDE
  5. NURTEC ODT [Suspect]
     Active Substance: RIMEGEPANT SULFATE
     Indication: MIGRAINE
     Dosage: UNK
  6. ZYRTEC [Concomitant]
     Active Substance: CETIRIZINE HYDROCHLORIDE

REACTIONS (9)
  - Menopause [Unknown]
  - Sinus disorder [Unknown]
  - Eye contusion [Recovered/Resolved]
  - Feeling hot [Unknown]
  - Hyperhidrosis [Unknown]
  - Therapeutic product effect incomplete [Unknown]
  - Middle insomnia [Unknown]
  - Amenorrhoea [Unknown]
  - Migraine [Unknown]

NARRATIVE: CASE EVENT DATE: 2021
